FAERS Safety Report 10055276 (Version 1)
Quarter: 2014Q2

REPORT INFORMATION
  Report Type: Spontaneous
  Country: CA (occurrence: CA)
  Receive Date: 20140403
  Receipt Date: 20140403
  Transmission Date: 20141212
  Serious: Yes (Other)
  Sender: FDA-Public Use
  Company Number: CA-AMGEN INC.-CANSP2014022781

PATIENT
  Age: 82 Year
  Sex: Female

DRUGS (3)
  1. ENBREL [Suspect]
     Indication: RHEUMATOID ARTHRITIS
     Dosage: 25 MG, UNK
     Route: 065
  2. SYNTHROID [Concomitant]
     Dosage: UNK
  3. PANTOLOC                           /01263204/ [Concomitant]
     Dosage: UNK

REACTIONS (4)
  - Gastric disorder [Unknown]
  - Thyroid disorder [Unknown]
  - Feeling abnormal [Unknown]
  - Vomiting [Unknown]
